FAERS Safety Report 18567978 (Version 2)
Quarter: 2021Q1

REPORT INFORMATION
  Report Type: Spontaneous
  Country: US (occurrence: US)
  Receive Date: 20201202
  Receipt Date: 20210112
  Transmission Date: 20210419
  Serious: No
  Sender: FDA-Public Use
  Company Number: US-AMGEN-USASP2020195745

PATIENT
  Age: 64 Year
  Sex: Female

DRUGS (7)
  1. BUMETANIDE. [Concomitant]
     Active Substance: BUMETANIDE
  2. RESTASIS [Concomitant]
     Active Substance: CYCLOSPORINE
  3. PREMARIN [Concomitant]
     Active Substance: ESTROGENS, CONJUGATED
  4. LOSARTAN. [Concomitant]
     Active Substance: LOSARTAN
  5. OTEZLA [Suspect]
     Active Substance: APREMILAST
     Indication: PSORIASIS
     Dosage: 30 MILLIGRAM, BID
     Route: 048
     Dates: start: 20170608
  6. MELOXICAM. [Concomitant]
     Active Substance: MELOXICAM
  7. MONTELUCAST [Concomitant]
     Active Substance: MONTELUKAST SODIUM

REACTIONS (2)
  - Rash [Not Recovered/Not Resolved]
  - Pain [Not Recovered/Not Resolved]

NARRATIVE: CASE EVENT DATE: 202010
